FAERS Safety Report 7133381-9 (Version None)
Quarter: 2010Q4

REPORT INFORMATION
  Report Type: 
  Country: None (occurrence: None)
  Receive Date: 20101117
  Receipt Date: 20100903
  Transmission Date: 20110411
  Serious: No
  Sender: FDA-Public Use
  Company Number: 2010-00906

PATIENT
  Age: 69 Year
  Sex: Male
  Weight: 108.8633 kg

DRUGS (13)
  1. ZICAM COLD REMEDY PLUS ORAL MIST [Suspect]
     Dosage: Q 3 HRS X 3 DOSES
     Dates: start: 20100903
  2. GLIPIZIDE [Concomitant]
  3. METFORMIN [Concomitant]
  4. SIMVASTATIN [Concomitant]
  5. LISINOPRIL [Concomitant]
  6. ATENOLOL [Concomitant]
  7. VICODIN [Concomitant]
  8. CARISOPRODOL (GENERIC FOR SOMA) [Concomitant]
  9. MSM [Concomitant]
  10. ASCORBIC ACID [Concomitant]
  11. VITAMIN B-12 [Concomitant]
  12. FISH OIL [Concomitant]
  13. CRANBERRY [Concomitant]

REACTIONS (1)
  - AGEUSIA [None]
